FAERS Safety Report 8778943 (Version 4)
Quarter: 2013Q1

REPORT INFORMATION
  Report Type: Report from Study
  Country: IT (occurrence: IT)
  Receive Date: 20120912
  Receipt Date: 20130304
  Transmission Date: 20140127
  Serious: Yes (Other)
  Sender: FDA-Public Use
  Company Number: PHHO2012IT012920

PATIENT
  Age: 48 Year
  Sex: Female
  Weight: 56 kg

DRUGS (2)
  1. FTY [Suspect]
     Indication: MULTIPLE SCLEROSIS
     Dosage: 0.5 MG, QD
     Route: 048
     Dates: start: 20110722, end: 20120418
  2. AMANTADINE [Concomitant]
     Indication: FATIGUE
     Dosage: UNK
     Dates: start: 20110531

REACTIONS (1)
  - Breast cancer [Recovered/Resolved with Sequelae]
